FAERS Safety Report 5737622-1 (Version None)
Quarter: 2008Q2

REPORT INFORMATION
  Report Type: 
  Country: None (occurrence: None)
  Receive Date: 20080514
  Receipt Date: 20080506
  Transmission Date: 20081010
  Serious: Yes (Other)
  Sender: FDA-Public Use
  Company Number: FR-ROCHE-563052

PATIENT
  Sex: Male

DRUGS (7)
  1. ROCEPHIN [Suspect]
     Dosage: FORM REPORTED AS: INJECTABLE SOLUTION
     Route: 065
     Dates: start: 20080503, end: 20080503
  2. ROCEPHIN [Suspect]
     Route: 065
     Dates: start: 20080504, end: 20080506
  3. VITAMIN K1 ^ROCHE^ [Concomitant]
  4. CALCIUM [Concomitant]
     Route: 048
     Dates: start: 20080505
  5. GLUCOSE [Concomitant]
  6. AMOXICILLIN [Concomitant]
     Dosage: INITIAL DOSAGE
     Dates: start: 20080503, end: 20080503
  7. AMOXICILLIN [Concomitant]

REACTIONS (2)
  - BRADYCARDIA [None]
  - HYPOCALCAEMIA [None]
